FAERS Safety Report 5407547-X (Version None)
Quarter: 2007Q3

REPORT INFORMATION
  Report Type: 
  Country: None (occurrence: None)
  Receive Date: 20070803
  Receipt Date: 20070718
  Transmission Date: 20080115
  Serious: Yes (Life-Threatening, Hospitalization)
  Sender: FDA-Public Use
  Company Number: DSA_30293_2007

PATIENT
  Sex: Male

DRUGS (3)
  1. TAVOR /00273201/ (TAVOR - LORAZEPAM) [Suspect]
     Dosage: 7 MG 1X SUBLINGUAL
     Route: 060
     Dates: start: 20070716, end: 20070716
  2. ETHANOL (WINE) [Suspect]
     Dosage: 0.5 1 1X ORAL
     Route: 048
     Dates: start: 20070716, end: 20070716
  3. SERTRALINE [Suspect]
     Dosage: 2000 MG 1X ORAL
     Route: 048
     Dates: start: 20070716, end: 20070716

REACTIONS (6)
  - CONFUSIONAL STATE [None]
  - FATIGUE [None]
  - MULTIPLE DRUG OVERDOSE INTENTIONAL [None]
  - SOMNOLENCE [None]
  - SUICIDE ATTEMPT [None]
  - VOMITING [None]
